FAERS Safety Report 4322108-1 (Version None)
Quarter: 2004Q1

REPORT INFORMATION
  Report Type: 
  Country: None (occurrence: None)
  Receive Date: 20040323
  Receipt Date: 20040309
  Transmission Date: 20041129
  Serious: Yes (Hospitalization)
  Sender: FDA-Public Use
  Company Number: AT-GLAXOSMITHKLINE-B0326557A

PATIENT
  Age: 36 Year
  Sex: Female

DRUGS (8)
  1. PAROXETINE HCL [Suspect]
     Indication: SCHIZOAFFECTIVE DISORDER
     Route: 048
     Dates: start: 20030929
  2. RISPERDAL [Suspect]
     Indication: SCHIZOAFFECTIVE DISORDER
     Route: 048
     Dates: start: 20030829
  3. DEPAKENE [Concomitant]
     Indication: SCHIZOAFFECTIVE DISORDER
     Dosage: 1000MG PER DAY
     Route: 048
     Dates: start: 20030829
  4. DOMINAL [Concomitant]
     Indication: SCHIZOAFFECTIVE DISORDER
     Route: 048
     Dates: start: 20030904, end: 20031019
  5. KEMADRIN [Concomitant]
     Indication: PARKINSON'S DISEASE
     Route: 048
     Dates: start: 20030929
  6. PANTOLOC [Concomitant]
     Indication: PROPHYLAXIS
     Route: 048
     Dates: start: 20030929
  7. ISOPTIN TAB [Concomitant]
     Indication: ELECTROCARDIOGRAM QT PROLONGED
     Dosage: 60MG PER DAY
     Route: 048
     Dates: start: 20030929, end: 20031020
  8. ESUCOS [Concomitant]
     Indication: SCHIZOAFFECTIVE DISORDER
     Dosage: 25MG PER DAY
     Route: 048
     Dates: start: 20030929, end: 20031014

REACTIONS (3)
  - DRUG INTERACTION [None]
  - DRUG LEVEL INCREASED [None]
  - ELECTROCARDIOGRAM QT PROLONGED [None]
